FAERS Safety Report 17861880 (Version 1)
Quarter: 2020Q2

REPORT INFORMATION
  Report Type: Spontaneous
  Country: US (occurrence: US)
  Receive Date: 20200604
  Receipt Date: 20200604
  Transmission Date: 20200714
  Serious: Yes (Life-Threatening, Hospitalization, Disabling, Other)
  Sender: FDA-Public Use
  Company Number: US-BAYER-2020-100344

PATIENT
  Age: 39 Year
  Sex: Female

DRUGS (2)
  1. CALCIUM CARBONATE. [Suspect]
     Active Substance: CALCIUM CARBONATE
     Dosage: 1.5 G, QD
  2. CALCIUM CARBONATE. [Suspect]
     Active Substance: CALCIUM CARBONATE
     Dosage: 6 G

REACTIONS (9)
  - Metabolic alkalosis [Recovered/Resolved with Sequelae]
  - Dysmetria [Not Recovered/Not Resolved]
  - Acute kidney injury [Recovered/Resolved with Sequelae]
  - Incorrect dose administered [None]
  - Hypercalcaemia [Recovered/Resolved with Sequelae]
  - Overdose [None]
  - Posterior reversible encephalopathy syndrome [Recovered/Resolved with Sequelae]
  - Fine motor skill dysfunction [Not Recovered/Not Resolved]
  - Milk-alkali syndrome [Recovered/Resolved with Sequelae]
